FAERS Safety Report 8904177 (Version 1)
Quarter: 2012Q4

REPORT INFORMATION
  Report Type: 
  Country: FI (occurrence: FI)
  Receive Date: 20121113
  Receipt Date: 20121113
  Transmission Date: 20130627
  Serious: Yes (Hospitalization)
  Sender: FDA-Public Use
  Company Number: FI-MYLANLABS-2012S1022842

PATIENT
  Age: 62 Year
  Sex: Male

DRUGS (1)
  1. METFORMIN [Suspect]
     Indication: PRODUCT USED FOR UNKNOWN INDICATION

REACTIONS (3)
  - Lactic acidosis [Recovered/Resolved]
  - Acute myocardial infarction [Unknown]
  - Cardiogenic shock [Unknown]
